FAERS Safety Report 5892567-1 (Version None)
Quarter: 2008Q3

REPORT INFORMATION
  Report Type: 
  Country: None (occurrence: None)
  Receive Date: 20080919
  Receipt Date: 20080905
  Transmission Date: 20090109
  Serious: Yes (Hospitalization)
  Sender: FDA-Public Use
  Company Number: 2008S1016382

PATIENT
  Age: 48 Year
  Sex: Female
  Weight: 36 kg

DRUGS (1)
  1. GLIPIZIDE [Suspect]
     Dosage: 7.5 MG; 3 TIMES A DAY; GASTROSTOMY TUBE

REACTIONS (8)
  - CONDITION AGGRAVATED [None]
  - DRUG INTERACTION [None]
  - GASTROOESOPHAGEAL REFLUX DISEASE [None]
  - GRAND MAL CONVULSION [None]
  - HYPERHIDROSIS [None]
  - HYPOGLYCAEMIA [None]
  - TACHYCARDIA [None]
  - VOMITING [None]
